FAERS Safety Report 5402522-3 (Version None)
Quarter: 2007Q3

REPORT INFORMATION
  Report Type: 
  Country: None (occurrence: None)
  Receive Date: 20070801
  Receipt Date: 20060929
  Transmission Date: 20080115
  Serious: No
  Sender: FDA-Public Use
  Company Number: A0621950A

PATIENT

DRUGS (1)
  1. IMITREX [Suspect]
     Indication: MIGRAINE
     Route: 048

REACTIONS (1)
  - DRUG ADMINISTRATION ERROR [None]
